FAERS Safety Report 8182906-3 (Version None)
Quarter: 2012Q1

REPORT INFORMATION
  Report Type: 
  Country: None (occurrence: None)
  Receive Date: 20120305
  Receipt Date: 20120224
  Transmission Date: 20120608
  Serious: Yes (Other)
  Sender: FDA-Public Use
  Company Number: US-BAYER-2012-018564

PATIENT
  Age: 36 Year
  Sex: Female

DRUGS (3)
  1. FLEXERIL [Concomitant]
  2. NAPROSYN [Concomitant]
  3. YASMIN [Suspect]
     Route: 048

REACTIONS (2)
  - PULMONARY EMBOLISM [None]
  - CEREBRAL INFARCTION [None]
